FAERS Safety Report 8959567 (Version 2)
Quarter: 2013Q1

REPORT INFORMATION
  Report Type: Spontaneous
  Country: US (occurrence: US)
  Receive Date: 20121212
  Receipt Date: 20130108
  Transmission Date: 20140127
  Serious: No
  Sender: FDA-Public Use
  Company Number: US-BAYER-2012-120045

PATIENT
  Age: 38 Year
  Sex: Male

DRUGS (2)
  1. ULTRAVIST [Suspect]
     Indication: COMPUTERISED TOMOGRAM THORAX
     Dosage: 100 ML, ONCE
     Dates: start: 20080404, end: 20080404
  2. ULTRAVIST [Suspect]
     Indication: COMPUTERISED TOMOGRAM ABDOMEN
     Dosage: 100 ML, ONCE
     Dates: start: 20121018, end: 20121018

REACTIONS (5)
  - Nasal congestion [None]
  - Sneezing [None]
  - Dyskinesia [None]
  - Sneezing [None]
  - Nasal congestion [Recovered/Resolved]
